FAERS Safety Report 19810356 (Version 1)
Quarter: 2021Q3

REPORT INFORMATION
  Report Type: Spontaneous
  Country: FR (occurrence: FR)
  Receive Date: 20210909
  Receipt Date: 20210909
  Transmission Date: 20211014
  Serious: Yes (Hospitalization)
  Sender: FDA-Public Use
  Company Number: FR-ACCORD-237718

PATIENT
  Age: 66 Year
  Sex: Male

DRUGS (2)
  1. CORTANCYL [Suspect]
     Active Substance: PREDNISONE
     Indication: NECROTISING MYOSITIS
     Route: 048
     Dates: start: 20120403
  2. METHOTREXATE. [Suspect]
     Active Substance: METHOTREXATE
     Indication: NECROTISING MYOSITIS
     Route: 058
     Dates: start: 20120808, end: 2012

REACTIONS (1)
  - Nocardiosis [Recovered/Resolved]

NARRATIVE: CASE EVENT DATE: 201209
